FAERS Safety Report 16867694 (Version 2)
Quarter: 2019Q4

REPORT INFORMATION
  Report Type: Spontaneous
  Country: BR (occurrence: BR)
  Receive Date: 20190930
  Receipt Date: 20191001
  Transmission Date: 20200122
  Serious: Yes (Hospitalization)
  Sender: FDA-Public Use
  Company Number: PHHY2019BR224748

PATIENT

DRUGS (1)
  1. LECTRUM [Suspect]
     Active Substance: LEUPROLIDE ACETATE
     Indication: PRODUCT USED FOR UNKNOWN INDICATION
     Dosage: UNK (ABOUT 1 YEAR AND HALF MONTH)
     Route: 065

REACTIONS (2)
  - Amaurosis [Unknown]
  - Blindness [Unknown]
